FAERS Safety Report 12930269 (Version 3)
Quarter: 2016Q4

REPORT INFORMATION
  Report Type: Spontaneous
  Country: US (occurrence: US)
  Receive Date: 20161110
  Receipt Date: 20161116
  Transmission Date: 20170207
  Serious: Yes (Other)
  Sender: FDA-Public Use
  Company Number: US-PFIZER INC-2016523625

PATIENT
  Age: 18 Year
  Sex: Female
  Weight: 86.17 kg

DRUGS (1)
  1. EPIPEN [Suspect]
     Active Substance: EPINEPHRINE
     Indication: HYPERSENSITIVITY
     Dosage: 0.3 MG, SINGLE
     Route: 030
     Dates: start: 20161029, end: 20161029

REACTIONS (3)
  - Product quality issue [Recovering/Resolving]
  - Injection site laceration [Recovering/Resolving]
  - Vomiting [Unknown]

NARRATIVE: CASE EVENT DATE: 20161029
